FAERS Safety Report 24728912 (Version 1)
Quarter: 2024Q4

REPORT INFORMATION
  Report Type: Spontaneous
  Country: JP (occurrence: JP)
  Receive Date: 20241212
  Receipt Date: 20241212
  Transmission Date: 20250114
  Serious: Yes (Death, Life-Threatening)
  Sender: GLAXOSMITHKLINE
  Company Number: JP-GSKNCCC-Case-02116865_AE-90621

PATIENT

DRUGS (1)
  1. ATOVAQUONE [Suspect]
     Active Substance: ATOVAQUONE
     Indication: Prophylaxis
     Dosage: 10 ML, 1D

REACTIONS (2)
  - Hypophagia [Fatal]
  - Dysphagia [Fatal]
